FAERS Safety Report 16693233 (Version 1)
Quarter: 2019Q3

REPORT INFORMATION
  Report Type: Spontaneous
  Country: US (occurrence: US)
  Receive Date: 20190812
  Receipt Date: 20190812
  Transmission Date: 20191004
  Serious: Yes (Other)
  Sender: FDA-Public Use
  Company Number: US-AKORN PHARMACEUTICALS-2019AKN01679

PATIENT
  Age: 22 Year
  Sex: Female
  Weight: 67 kg

DRUGS (4)
  1. MYORISAN [Suspect]
     Active Substance: ISOTRETINOIN
     Dosage: 60 MG, 1X/DAY FOR 3 MONTHS
     Dates: start: 201903, end: 20190701
  2. MYORISAN [Suspect]
     Active Substance: ISOTRETINOIN
     Indication: ACNE
     Dosage: 30 MG, 1X/DAY FOR 1 MONTH
     Dates: start: 20190214, end: 201903
  3. AZELASTINE. [Concomitant]
     Active Substance: AZELASTINE HYDROCHLORIDE
     Route: 045
  4. FLUTICASONE. [Concomitant]
     Active Substance: FLUTICASONE
     Route: 045

REACTIONS (2)
  - Off label use [Recovered/Resolved]
  - Colitis ulcerative [Not Recovered/Not Resolved]

NARRATIVE: CASE EVENT DATE: 2019
